FAERS Safety Report 7338477-4 (Version None)
Quarter: 2011Q1

REPORT INFORMATION
  Report Type: 
  Country: None (occurrence: None)
  Receive Date: 20110308
  Receipt Date: 20110228
  Transmission Date: 20110831
  Serious: Yes (Hospitalization)
  Sender: FDA-Public Use
  Company Number: US-ELI_LILLY_AND_COMPANY-US201102007316

PATIENT
  Sex: Female

DRUGS (2)
  1. HUMULIN 70/30 [Suspect]
     Indication: DIABETES MELLITUS
     Dosage: 5 U, 2/D
     Dates: start: 19980101
  2. HUMULIN 70/30 [Suspect]
     Dosage: 2 U, EACH EVENING
     Dates: start: 19980101

REACTIONS (6)
  - INTERVERTEBRAL DISC PROTRUSION [None]
  - PNEUMONIA [None]
  - DIABETIC NEUROPATHY [None]
  - INTERVERTEBRAL DISC DISPLACEMENT [None]
  - SPINAL COLUMN STENOSIS [None]
  - DRUG DOSE OMISSION [None]
